FAERS Safety Report 26073196 (Version 1)
Quarter: 2025Q4

REPORT INFORMATION
  Report Type: Spontaneous
  Country: JP (occurrence: JP)
  Receive Date: 20251121
  Receipt Date: 20251121
  Transmission Date: 20260118
  Serious: Yes (Hospitalization)
  Sender: MERCK SHARP & DOHME LLC
  Company Number: JP-009507513-2350095

PATIENT
  Age: 87 Year
  Sex: Male
  Weight: 45.8 kg

DRUGS (7)
  1. STROMECTOL [Suspect]
     Active Substance: IVERMECTIN
     Indication: Scabies
     Dosage: 0.5 TABLET
     Route: 048
     Dates: start: 20251017, end: 20251017
  2. STROMECTOL [Suspect]
     Active Substance: IVERMECTIN
     Indication: Scabies
     Dosage: 0.5 TABLET
     Route: 048
     Dates: start: 20251024, end: 20251024
  3. Cilostazol OD tablet 50 mg [Concomitant]
     Route: 048
  4. Donepezil hydrochloride OD 3 mg [Concomitant]
     Route: 048
  5. Silodosin OD tablet 4 mg [Concomitant]
     Route: 048
  6. LANSOPRAZOLE [Concomitant]
     Active Substance: LANSOPRAZOLE
     Route: 048
  7. Amlodipine OD tablet 2.5 mg [Concomitant]
     Route: 048

REACTIONS (3)
  - Platelet count decreased [Not Recovered/Not Resolved]
  - White blood cell count decreased [Recovering/Resolving]
  - Hypercreatininaemia [Recovering/Resolving]

NARRATIVE: CASE EVENT DATE: 20251007
